FAERS Safety Report 7817895-1 (Version None)
Quarter: 2011Q4

REPORT INFORMATION
  Report Type: 
  Country: None (occurrence: None)
  Receive Date: 20111017
  Receipt Date: 20111010
  Transmission Date: 20120403
  Serious: Yes (Hospitalization, Other)
  Sender: FDA-Public Use
  Company Number: US-BRISTOL-MYERS SQUIBB COMPANY-15935182

PATIENT
  Age: 56 Year
  Sex: Male
  Weight: 66 kg

DRUGS (24)
  1. AMLODIPINE BESYLATE [Concomitant]
  2. NYSTATIN [Concomitant]
  3. NICODERM CQ [Concomitant]
  4. TRAMADOL HCL [Concomitant]
  5. ERBITUX [Suspect]
     Indication: NON-SMALL CELL LUNG CANCER
     Dosage: NO OF COURSES: 7 LAST INF ON 05JUL11, 29SEP11 RECEIVED ALSO ON 06OCT2011.
     Dates: start: 20110607
  6. CALCIUM CARBONATE [Concomitant]
  7. MULTI-VITAMINS [Concomitant]
  8. MAGNESIUM HYDROXIDE TAB [Concomitant]
  9. POTASSIUM CHLORIDE [Concomitant]
     Dosage: POTASSIUM CHLORIDE CR
  10. TETRACYCLINE HCL [Concomitant]
  11. LISINOPRIL [Suspect]
  12. GABAPENTIN [Concomitant]
  13. MAGNESIUM OXIDE [Concomitant]
  14. ATENOLOL [Suspect]
  15. LIDOCAINE [Concomitant]
  16. VIAGRA [Concomitant]
  17. ZOCOR [Concomitant]
  18. TAXOL [Suspect]
     Indication: NON-SMALL CELL LUNG CANCER
     Dosage: NO OF COURSES: 7 LAST INF:05JUL11, 29SEP11
     Dates: start: 20110607
  19. MIRALAX [Concomitant]
     Dosage: POWDER
  20. PLAVIX [Concomitant]
  21. CARBOPLATIN [Suspect]
     Indication: NON-SMALL CELL LUNG CANCER
     Dosage: NO OF COURSES: 7 LAST INF:05JUL11, 29SEP2011
     Dates: start: 20110607
  22. VITAMIN D [Concomitant]
  23. FOLIC ACID [Concomitant]
  24. BENADRYL [Concomitant]

REACTIONS (7)
  - ANAEMIA [None]
  - DECREASED APPETITE [None]
  - WHITE BLOOD CELL COUNT DECREASED [None]
  - HYPOTENSION [None]
  - DEHYDRATION [None]
  - NEUTROPHIL COUNT DECREASED [None]
  - FATIGUE [None]
